FAERS Safety Report 8766898 (Version 2)
Quarter: 2012Q4

REPORT INFORMATION
  Report Type: 
  Country: US (occurrence: US)
  Receive Date: 20120904
  Receipt Date: 20121012
  Transmission Date: 20130627
  Serious: No
  Sender: FDA-Public Use
  Company Number: US-JNJFOC-20120812995

PATIENT
  Sex: Male

DRUGS (4)
  1. INVEGA SUSTENNA [Suspect]
     Indication: SCHIZOPHRENIA
     Route: 030
     Dates: start: 20100805
  2. INVEGA [Suspect]
     Indication: SCHIZOPHRENIA
     Route: 048
     Dates: start: 20120809
  3. BUPROPION [Concomitant]
     Indication: DEPRESSION
     Route: 065
     Dates: start: 20110908
  4. LORAZEPAM [Concomitant]
     Indication: AGITATION
     Route: 065
     Dates: start: 20110908

REACTIONS (3)
  - Incorrect dose administered [Unknown]
  - Psychotic disorder [Unknown]
  - Drug ineffective [Not Recovered/Not Resolved]
